FAERS Safety Report 6974267-X (Version None)
Quarter: 2010Q3

REPORT INFORMATION
  Report Type: 
  Country: None (occurrence: None)
  Receive Date: 20100909
  Receipt Date: 20080407
  Transmission Date: 20110219
  Serious: No
  Sender: FDA-Public Use
  Company Number: US-WYE-H03515408

PATIENT

DRUGS (2)
  1. PROTONIX [Suspect]
     Dosage: UNKNOWN
  2. CARAFATE [Suspect]

REACTIONS (3)
  - ABDOMINAL PAIN UPPER [None]
  - COELIAC DISEASE [None]
  - NAUSEA [None]
